FAERS Safety Report 10871993 (Version 2)
Quarter: 2015Q3

REPORT INFORMATION
  Report Type: Spontaneous
  Country: US (occurrence: US)
  Receive Date: 20150226
  Receipt Date: 20150817
  Transmission Date: 20151125
  Serious: Yes (Death)
  Sender: FDA-Public Use
  Company Number: US-MALLINCKRODT-T201501272

PATIENT
  Sex: Female

DRUGS (12)
  1. SYMBICORT [Concomitant]
     Active Substance: BUDESONIDE\FORMOTEROL FUMARATE DIHYDRATE
  2. OMEPRAZOLE. [Concomitant]
     Active Substance: OMEPRAZOLE
  3. DIAZEPAM. [Concomitant]
     Active Substance: DIAZEPAM
  4. MELATONIN [Concomitant]
     Active Substance: MELATONIN
  5. TRILEPTAL [Concomitant]
     Active Substance: OXCARBAZEPINE
  6. CLONIDINE. [Concomitant]
     Active Substance: CLONIDINE
  7. CHOLECALCIFEROL [Concomitant]
     Active Substance: CHOLECALCIFEROL
  8. LORAZEPAM. [Concomitant]
     Active Substance: LORAZEPAM
  9. MAGNESIUM GLUCONATE [Concomitant]
     Active Substance: MAGNESIUM GLUCONATE
  10. GABLOFEN [Suspect]
     Active Substance: BACLOFEN
     Indication: MUSCLE SPASTICITY
     Dosage: 825 MCG/DAY
     Route: 037
  11. KEPPRA [Concomitant]
     Active Substance: LEVETIRACETAM
  12. SELENIUM [Concomitant]
     Active Substance: SELENIUM

REACTIONS (2)
  - Brain injury [Fatal]
  - Aspiration [Fatal]
